FAERS Safety Report 26064143 (Version 1)
Quarter: 2025Q4

REPORT INFORMATION
  Report Type: Spontaneous
  Country: GB (occurrence: GB)
  Receive Date: 20251119
  Receipt Date: 20251119
  Transmission Date: 20260118
  Serious: Yes (Other)
  Sender: RANBAXY
  Company Number: GB-MHRA-TPP11438397C1316143YC1762170941677

PATIENT
  Age: 26 Year
  Sex: Female
  Weight: 81 kg

DRUGS (9)
  1. FLUCONAZOLE [Suspect]
     Active Substance: FLUCONAZOLE
     Indication: Ill-defined disorder
     Dosage: TAKE ONE DAILY FOR UPTO 4 WEEK
     Route: 065
     Dates: start: 20251030
  2. BETNOVATE [Concomitant]
     Active Substance: BETAMETHASONE
     Indication: Ill-defined disorder
     Dosage: USE AT NIGHT
     Route: 065
     Dates: start: 20250904, end: 20251002
  3. Hydromol [Concomitant]
     Indication: Ill-defined disorder
     Dosage: USE AS SOAP SUBST AND AS LEAVE ON MOISTURISER
     Route: 065
     Dates: start: 20250904, end: 20251002
  4. CLOBETASOL PROPIONATE [Concomitant]
     Active Substance: CLOBETASOL PROPIONATE
     Indication: Ill-defined disorder
     Dosage: APPLY ONCE A DAY
     Route: 065
     Dates: start: 20251030
  5. Zeroderm [Concomitant]
     Indication: Ill-defined disorder
     Dosage: USE AS DIRECTED
     Route: 065
     Dates: start: 20251010
  6. DICLOFENAC SODIUM [Concomitant]
     Active Substance: DICLOFENAC SODIUM
     Indication: Ill-defined disorder
     Dosage: INSERT ONE AT NIGHT FOR 5 DAYS PER MONTH AS DIR...
     Route: 065
     Dates: start: 20231002
  7. ESTRADIOL\NOMEGESTROL ACETATE [Concomitant]
     Active Substance: ESTRADIOL\NOMEGESTROL ACETATE
     Indication: Ill-defined disorder
     Dosage: TAKE AS DIRECTED BY GYNAE
     Route: 065
     Dates: start: 20231002
  8. COCODAMOL [Concomitant]
     Active Substance: ACETAMINOPHEN\CODEINE PHOSPHATE
     Indication: Ill-defined disorder
     Dosage: TAKE 2 TABLETS 4 TIMES/DAY WHEN REQUIRED
     Route: 065
     Dates: start: 20250102
  9. NAPROXEN [Concomitant]
     Active Substance: NAPROXEN
     Indication: Ill-defined disorder
     Dosage: TAKE ONE 3 TIMES/DAY WITH FOOD WHEN REQUIRED
     Route: 065
     Dates: start: 20250102

REACTIONS (4)
  - Blister [Recovering/Resolving]
  - Rash erythematous [Recovering/Resolving]
  - Swollen tongue [Recovering/Resolving]
  - Stomatitis [Unknown]

NARRATIVE: CASE EVENT DATE: 20251101
